FAERS Safety Report 4587456-9 (Version None)
Quarter: 2005Q1

REPORT INFORMATION
  Report Type: 
  Country: None (occurrence: None)
  Receive Date: 20050215
  Receipt Date: 20050201
  Transmission Date: 20050727
  Serious: Yes (Hospitalization)
  Sender: FDA-Public Use
  Company Number: SUS1-2004-00563

PATIENT
  Age: 66 Year
  Sex: Male

DRUGS (4)
  1. PENTASA [Suspect]
     Dosage: 2 G, DAILY -GRANULES, ORAL
     Route: 048
     Dates: start: 20040517, end: 20040703
  2. PENTASA REGIMEN #2 [Suspect]
     Dosage: RECTAL
     Route: 054
     Dates: end: 20040401
  3. VALSARTAN (VALSARTAN) [Concomitant]
  4. CARVEDILOL [Concomitant]

REACTIONS (11)
  - C-REACTIVE PROTEIN INCREASED [None]
  - CHILLS [None]
  - HAEMATURIA [None]
  - LYMPHOPENIA [None]
  - NEPHRITIS ALLERGIC [None]
  - PROTEINURIA [None]
  - PYREXIA [None]
  - RENAL CYST [None]
  - RENAL FAILURE ACUTE [None]
  - TRANSAMINASES INCREASED [None]
  - VOMITING [None]
